FAERS Safety Report 7301888-7 (Version None)
Quarter: 2011Q1

REPORT INFORMATION
  Report Type: 
  Country: None (occurrence: None)
  Receive Date: 20110218
  Receipt Date: 20110215
  Transmission Date: 20110831
  Serious: Yes (Other)
  Sender: FDA-Public Use
  Company Number: FR-SANOFI-AVENTIS-2011SA009770

PATIENT
  Age: 80 Year
  Sex: Female

DRUGS (2)
  1. SOTALOL HCL [Concomitant]
  2. MULTAQ [Suspect]
     Route: 048
     Dates: start: 20101201, end: 20110201

REACTIONS (1)
  - HYPERTHYROIDISM [None]
